FAERS Safety Report 9262952 (Version 2)
Quarter: 2013Q2

REPORT INFORMATION
  Report Type: Spontaneous
  Country: US (occurrence: US)
  Receive Date: 20130430
  Receipt Date: 20130528
  Transmission Date: 20140414
  Serious: Yes (Other)
  Sender: FDA-Public Use
  Company Number: US-ASTELLAS-2013US004416

PATIENT
  Age: 66 Year
  Sex: Male

DRUGS (4)
  1. VESICARE [Suspect]
     Indication: PROSTATIC OPERATION
     Dosage: 5 MG, UID/QD
     Route: 048
     Dates: start: 20130416
  2. LEVOTHYROXINE [Concomitant]
     Indication: PRODUCT USED FOR UNKNOWN INDICATION
     Dosage: .137 MG, UID/QD
     Route: 065
  3. LISINOPRIL [Concomitant]
     Indication: PRODUCT USED FOR UNKNOWN INDICATION
     Dosage: 10-12.5 MG UID
     Route: 065
  4. PRAVASTATIN [Concomitant]
     Indication: PRODUCT USED FOR UNKNOWN INDICATION
     Dosage: 10 MG, UID/QD
     Route: 065

REACTIONS (3)
  - Off label use [Unknown]
  - Blood pressure decreased [Unknown]
  - Dizziness [Unknown]
